FAERS Safety Report 8017945-6 (Version None)
Quarter: 2012Q1

REPORT INFORMATION
  Report Type: 
  Country: None (occurrence: None)
  Receive Date: 20120103
  Receipt Date: 20111223
  Transmission Date: 20120608
  Serious: Yes (Hospitalization)
  Sender: FDA-Public Use
  Company Number: US-BAYER-2011-102751

PATIENT
  Age: 84 Year
  Sex: Male

DRUGS (3)
  1. NEXAVAR [Suspect]
     Dosage: UNK
     Dates: start: 20111029
  2. NEXAVAR [Suspect]
     Dosage: 400 MG, BID
     Dates: start: 20111012, end: 20111014
  3. NEXAVAR [Suspect]
     Indication: HEPATIC NEOPLASM MALIGNANT
     Dosage: 400 MG, BID
     Route: 048
     Dates: start: 20110908

REACTIONS (8)
  - TREMOR [None]
  - DIARRHOEA [None]
  - DYSPNOEA [None]
  - CHILLS [None]
  - INFLUENZA LIKE ILLNESS [None]
  - PYREXIA [None]
  - FATIGUE [None]
  - PAIN [None]
